FAERS Safety Report 18165528 (Version 5)
Quarter: 2021Q4

REPORT INFORMATION
  Report Type: Spontaneous
  Country: US (occurrence: US)
  Receive Date: 20200818
  Receipt Date: 20211019
  Transmission Date: 20220303
  Serious: Yes (Other)
  Sender: FDA-Public Use
  Company Number: US-GILEAD-2020-0489964

PATIENT
  Age: 51 Year
  Sex: Male
  Weight: 91.16 kg

DRUGS (36)
  1. VIREAD [Suspect]
     Active Substance: TENOFOVIR DISOPROXIL FUMARATE
     Indication: HIV infection
     Dosage: UNK
     Route: 048
     Dates: start: 200303, end: 2012
  2. VIREAD [Suspect]
     Active Substance: TENOFOVIR DISOPROXIL FUMARATE
     Dosage: UNK
     Route: 048
     Dates: start: 20120531, end: 20150426
  3. VIREAD [Suspect]
     Active Substance: TENOFOVIR DISOPROXIL FUMARATE
     Dosage: UNK
     Route: 048
     Dates: start: 200303, end: 201205
  4. VIREAD [Suspect]
     Active Substance: TENOFOVIR DISOPROXIL FUMARATE
     Dosage: UNK
     Route: 048
     Dates: start: 200303, end: 20150426
  5. INTELENCE [Concomitant]
     Active Substance: ETRAVIRINE
  6. KALETRA [Concomitant]
     Active Substance: LOPINAVIR\RITONAVIR
  7. SUSTIVA [Concomitant]
     Active Substance: EFAVIRENZ
  8. TRIUMEQ [Concomitant]
     Active Substance: ABACAVIR SULFATE\DOLUTEGRAVIR SODIUM\LAMIVUDINE
  9. PEGASYS [Concomitant]
     Active Substance: PEGINTERFERON ALFA-2A
  10. NEUPOGEN [Concomitant]
     Active Substance: FILGRASTIM
  11. PREDNISOLONE [Concomitant]
     Active Substance: PREDNISOLONE
  12. BACTRIM [Concomitant]
     Active Substance: SULFAMETHOXAZOLE\TRIMETHOPRIM
  13. VICTRELIS [Concomitant]
     Active Substance: BOCEPREVIR
  14. TRAZODONE [Concomitant]
     Active Substance: TRAZODONE HYDROCHLORIDE
  15. ONDANSETRON [Concomitant]
     Active Substance: ONDANSETRON
  16. GABAPENTIN [Concomitant]
     Active Substance: GABAPENTIN
  17. RIBAVIRIN [Concomitant]
     Active Substance: RIBAVIRIN
  18. FLEXERIL [Concomitant]
     Active Substance: CYCLOBENZAPRINE HYDROCHLORIDE
  19. FLUTICASONE [Concomitant]
     Active Substance: FLUTICASONE
  20. CLOTRIMAZOLE [Concomitant]
     Active Substance: CLOTRIMAZOLE
  21. AZITHROMYCIN ANHYDROUS [Concomitant]
     Active Substance: AZITHROMYCIN ANHYDROUS
  22. BETAMETHASONE DIPROPIONATE [Concomitant]
     Active Substance: BETAMETHASONE DIPROPIONATE
  23. METFORMIN [Concomitant]
     Active Substance: METFORMIN HYDROCHLORIDE
  24. AMLODIPINE BESYLATE [Concomitant]
     Active Substance: AMLODIPINE BESYLATE
  25. DIPHENHYDRAMINE [Concomitant]
     Active Substance: DIPHENHYDRAMINE
  26. HYDROCORTISONE [Concomitant]
     Active Substance: HYDROCORTISONE
  27. BACITRACIN [Concomitant]
     Active Substance: BACITRACIN
  28. ATORVASTATIN [Concomitant]
     Active Substance: ATORVASTATIN
  29. ANDROGEL [Concomitant]
     Active Substance: TESTOSTERONE
  30. CETIRIZINE [Concomitant]
     Active Substance: CETIRIZINE HYDROCHLORIDE
  31. BENZONATATE [Concomitant]
     Active Substance: BENZONATATE
  32. MEDROL [Concomitant]
     Active Substance: METHYLPREDNISOLONE
  33. ALBUTEROL SULFATE [Concomitant]
     Active Substance: ALBUTEROL SULFATE
  34. DOXYCYCLINE [Concomitant]
     Active Substance: DOXYCYCLINE
  35. PERMETHRIN [Concomitant]
     Active Substance: PERMETHRIN
  36. IVERMECTIN [Concomitant]
     Active Substance: IVERMECTIN

REACTIONS (16)
  - Chronic kidney disease [Not Recovered/Not Resolved]
  - Blindness [Unknown]
  - Emotional distress [Not Recovered/Not Resolved]
  - Blood creatinine increased [Unknown]
  - Pain [Not Recovered/Not Resolved]
  - Anxiety [Not Recovered/Not Resolved]
  - Anhedonia [Not Recovered/Not Resolved]
  - Renal impairment [Recovered/Resolved]
  - Hypokinesia [Not Recovered/Not Resolved]
  - Bone pain [Recovered/Resolved]
  - Dry skin [Recovered/Resolved]
  - Rash [Recovered/Resolved]
  - Pruritus [Recovered/Resolved]
  - Bone disorder [Recovered/Resolved]
  - Skin disorder [Recovered/Resolved]
  - Asthenia [Not Recovered/Not Resolved]

NARRATIVE: CASE EVENT DATE: 20130601
